FAERS Safety Report 9931402 (Version 2)
Quarter: 2014Q1

REPORT INFORMATION
  Report Type: Spontaneous
  Country: JP (occurrence: JP)
  Receive Date: 20140228
  Receipt Date: 20140327
  Transmission Date: 20141002
  Serious: Yes (Other)
  Sender: FDA-Public Use
  Company Number: JP-009507513-1402JPN013304

PATIENT
  Sex: Male

DRUGS (1)
  1. REBETOL [Suspect]
     Indication: HEPATITIS C
     Dosage: DAILY DOSE UNKNOWN
     Route: 048
     Dates: end: 20140221

REACTIONS (1)
  - Convulsion [Unknown]
